FAERS Safety Report 24949471 (Version 1)
Quarter: 2025Q1

REPORT INFORMATION
  Report Type: Spontaneous
  Country: ES (occurrence: ES)
  Receive Date: 20250210
  Receipt Date: 20250210
  Transmission Date: 20250408
  Serious: Yes (Death, Hospitalization)
  Sender: TEVA
  Company Number: None

PATIENT
  Age: 94 Year
  Sex: Male

DRUGS (3)
  1. ALLOPURINOL [Suspect]
     Active Substance: ALLOPURINOL
     Indication: Hyperuricaemia
     Route: 048
     Dates: start: 20241118
  2. CHLORTHALIDONE [Suspect]
     Active Substance: CHLORTHALIDONE
     Indication: Heart failure with preserved ejection fraction
     Dosage: 50 MG MONDAY, WEDNESDAY, FRIDAY
     Route: 048
     Dates: start: 20241116
  3. FUROSEMIDE [Suspect]
     Active Substance: FUROSEMIDE
     Indication: Heart failure with preserved ejection fraction
     Dosage: 40 MG AT BREAKFAST AND LUNCH; FUROSEMIDE (1615A)
     Route: 048
     Dates: start: 20211115

REACTIONS (3)
  - Condition aggravated [Fatal]
  - Acute kidney injury [Fatal]
  - Angioedema [Not Recovered/Not Resolved]

NARRATIVE: CASE EVENT DATE: 20241209
